FAERS Safety Report 10960499 (Version 1)
Quarter: 2015Q1

REPORT INFORMATION
  Report Type: Spontaneous
  Country: PT (occurrence: PT)
  Receive Date: 20150327
  Receipt Date: 20150327
  Transmission Date: 20150721
  Serious: Yes (Other)
  Sender: FDA-Public Use
  Company Number: PT-CELGENE-PRT-2014114924

PATIENT

DRUGS (2)
  1. THALIDOMIDE [Suspect]
     Active Substance: THALIDOMIDE
     Indication: PLASMA CELL MYELOMA
     Route: 048
  2. REVLIMID [Suspect]
     Active Substance: LENALIDOMIDE
     Indication: PLASMA CELL MYELOMA
     Route: 048

REACTIONS (10)
  - Cardiotoxicity [Unknown]
  - Gastrointestinal disorder [Unknown]
  - Infection [Unknown]
  - Neurotoxicity [Unknown]
  - Embolism [Unknown]
  - Lung disorder [Unknown]
  - Renal disorder [Unknown]
  - Mental disorder [Unknown]
  - Haematotoxicity [Unknown]
  - Skin disorder [Unknown]
